FAERS Safety Report 9659202 (Version 1)
Quarter: 2013Q4

REPORT INFORMATION
  Report Type: Spontaneous
  Country: US (occurrence: US)
  Receive Date: 20131031
  Receipt Date: 20131031
  Transmission Date: 20140711
  Serious: Yes (Hospitalization)
  Sender: FDA-Public Use
  Company Number: US-JNJCP-30000184671

PATIENT
  Sex: Male
  Weight: 61 kg

DRUGS (2)
  1. AVEENO DAILY MOISTURIZING LOTION [Suspect]
     Route: 048
     Dates: start: 20131011, end: 20131011
  2. UNKNOWN [Concomitant]
     Indication: HYPERTENSION

REACTIONS (3)
  - Accidental exposure to product [Recovering/Resolving]
  - Vomiting [Recovered/Resolved]
  - White blood cell count increased [Recovering/Resolving]
